FAERS Safety Report 8353564-X (Version None)
Quarter: 2012Q2

REPORT INFORMATION
  Report Type: 
  Country: None (occurrence: None)
  Receive Date: 20120511
  Receipt Date: 20110613
  Transmission Date: 20120825
  Serious: No
  Sender: FDA-Public Use
  Company Number: US-GLAXOSMITHKLINE-A0931328A

PATIENT
  Age: 57 Year
  Sex: Female

DRUGS (9)
  1. LASIX [Concomitant]
  2. ALLERGY MEDICATION [Concomitant]
  3. DIGOXIN [Concomitant]
  4. HERCEPTIN [Concomitant]
  5. POTASSIUM CHLORIDE [Concomitant]
  6. EFFEXOR [Concomitant]
  7. ASPIRIN [Concomitant]
  8. TYKERB [Suspect]
     Indication: BREAST CANCER
     Dosage: 250MG CYCLIC
     Route: 048
     Dates: start: 20090601
  9. ALBUTEROL [Concomitant]

REACTIONS (1)
  - DIARRHOEA [None]
